FAERS Safety Report 14859433 (Version 7)
Quarter: 2019Q3

REPORT INFORMATION
  Report Type: Report from Study
  Country: US (occurrence: US)
  Receive Date: 20180508
  Receipt Date: 20190809
  Transmission Date: 20191004
  Serious: No
  Sender: FDA-Public Use
  Company Number: PHEH2018US017639

PATIENT
  Age: 40 Year
  Sex: Female

DRUGS (3)
  1. GILENYA [Suspect]
     Active Substance: FINGOLIMOD HYDROCHLORIDE
     Dosage: UNK
     Route: 048
     Dates: start: 20180509
  2. GILENYA [Suspect]
     Active Substance: FINGOLIMOD HYDROCHLORIDE
     Dosage: UNK
     Route: 065
     Dates: start: 20180418
  3. GILENYA [Suspect]
     Active Substance: FINGOLIMOD HYDROCHLORIDE
     Indication: MULTIPLE SCLEROSIS
     Dosage: 0.5 MG, QD
     Route: 048
     Dates: start: 20180406

REACTIONS (10)
  - Urine odour abnormal [Unknown]
  - Hypoaesthesia oral [Unknown]
  - Depression [Recovering/Resolving]
  - Nausea [Recovered/Resolved]
  - Rash pruritic [Not Recovered/Not Resolved]
  - Dry mouth [Recovering/Resolving]
  - Rash [Unknown]
  - Hypoaesthesia [Not Recovered/Not Resolved]
  - Vertigo positional [Unknown]
  - Dysarthria [Unknown]

NARRATIVE: CASE EVENT DATE: 20180418
